FAERS Safety Report 14034274 (Version 1)
Quarter: 2017Q4

REPORT INFORMATION
  Report Type: Other
  Country: JP (occurrence: JP)
  Receive Date: 20171003
  Receipt Date: 20171003
  Transmission Date: 20180321
  Serious: Yes (Hospitalization)
  Sender: FDA-Public Use
  Company Number: JP-ACTELION-A-CH2017-160115

PATIENT
  Age: 37 Year
  Sex: Female

DRUGS (2)
  1. OXYGEN. [Concomitant]
     Active Substance: OXYGEN
  2. EPOPROSTENOL SODIUM. [Suspect]
     Active Substance: EPOPROSTENOL SODIUM
     Indication: PULMONARY ARTERIAL HYPERTENSION
     Route: 042

REACTIONS (8)
  - Pulmonary artery wall hypertrophy [Unknown]
  - Low cardiac output syndrome [Unknown]
  - Concomitant disease aggravated [Unknown]
  - Right ventricular failure [Unknown]
  - Aspiration pleural cavity [Unknown]
  - Pleural effusion [Unknown]
  - Chylothorax [Unknown]
  - Dyspnoea exertional [Unknown]
